FAERS Safety Report 5556107-9 (Version None)
Quarter: 2007Q4

REPORT INFORMATION
  Report Type: 
  Country: None (occurrence: None)
  Receive Date: 20071213
  Receipt Date: 20071205
  Transmission Date: 20080405
  Serious: Yes (Other)
  Sender: FDA-Public Use
  Company Number: PHBS2007JP05853

PATIENT
  Age: 50 Year
  Sex: Male

DRUGS (7)
  1. SANDOSTATIN [Suspect]
     Indication: CARCINOID TUMOUR
     Dosage: 200 UG/D
     Route: 058
     Dates: start: 20070127, end: 20070213
  2. SANDOSTATIN [Suspect]
     Dosage: 100 UG/D
     Route: 058
     Dates: start: 20070214
  3. RISUMIC [Concomitant]
     Dosage: 20 MG/D
     Route: 048
     Dates: start: 20070216, end: 20070227
  4. PREDONINE [Concomitant]
     Dosage: 10 MG/D
     Route: 065
  5. CALCICOL [Concomitant]
  6. ADRENAL CORTICAL EXTRACT [Concomitant]
  7. INSULIN [Concomitant]

REACTIONS (2)
  - HYPOGLYCAEMIA [None]
  - HYPOTENSION [None]
